FAERS Safety Report 4903451-1 (Version None)
Quarter: 2006Q1

REPORT INFORMATION
  Report Type: 
  Country: None (occurrence: None)
  Receive Date: 20060203
  Receipt Date: 20060119
  Transmission Date: 20060701
  Serious: Yes (Other)
  Sender: FDA-Public Use
  Company Number: DE-2005-026851

PATIENT
  Age: 34 Year
  Sex: Female
  Weight: 85 kg

DRUGS (3)
  1. BETAFERON (INTERFERON BETA - 1B) INJECTION, 250UG [Suspect]
     Indication: MULTIPLE SCLEROSIS
     Dosage: 8 MIU, EVERY 2D, SUBCUTANEOUS
     Route: 058
     Dates: start: 20010101
  2. LIORESAL   NOVARTIS [Concomitant]
  3. TEGRETOL [Concomitant]

REACTIONS (8)
  - BLISTER [None]
  - DECUBITUS ULCER [None]
  - ERYTHEMA [None]
  - IMPAIRED HEALING [None]
  - INJECTION SITE NECROSIS [None]
  - SKIN FRAGILITY [None]
  - SKIN NECROSIS [None]
  - WHEELCHAIR USER [None]
